FAERS Safety Report 4996494-3 (Version None)
Quarter: 2006Q2

REPORT INFORMATION
  Report Type: 
  Country: None (occurrence: None)
  Receive Date: 20060509
  Receipt Date: 20051221
  Transmission Date: 20061013
  Serious: Yes (Death, Other)
  Sender: FDA-Public Use
  Company Number: JP-BRISTOL-MYERS SQUIBB COMPANY-13224688

PATIENT
  Age: 36 Year
  Sex: Male

DRUGS (12)
  1. IFOMIDE [Suspect]
     Indication: TESTIS CANCER
     Route: 041
     Dates: start: 20000724, end: 20031215
  2. VEPESID [Suspect]
     Indication: TESTIS CANCER
     Route: 041
     Dates: start: 20000608, end: 20020119
  3. BRIPLATIN [Suspect]
     Indication: TESTIS CANCER
     Route: 041
     Dates: start: 20000608, end: 20031215
  4. TAXOL [Concomitant]
     Indication: TESTICULAR MASS
     Dates: start: 20010727, end: 20031215
  5. PARAPLATIN [Concomitant]
     Indication: TESTICULAR MASS
     Dates: start: 20000918, end: 20001016
  6. METHOTREXATE [Concomitant]
     Indication: TESTICULAR MASS
     Dates: start: 20010425
  7. TAXOTERE [Concomitant]
     Indication: TESTICULAR MASS
     Dates: start: 20020404
  8. COSMEGEN [Concomitant]
     Indication: TESTICULAR MASS
     Dates: start: 20010424
  9. GEMZAR [Concomitant]
     Indication: TESTICULAR MASS
  10. IRINOTECAN HCL [Concomitant]
     Indication: TESTICULAR MASS
     Dates: start: 20010727, end: 20031215
  11. AQUPLA [Concomitant]
     Dates: start: 20040510, end: 20041018
  12. BLEOMYCIN [Concomitant]
     Dates: start: 20000608, end: 20010208

REACTIONS (3)
  - ACUTE MYELOID LEUKAEMIA [None]
  - REFRACTORY ANAEMIA WITH EXCESS BLASTS IN TRANSFORMATION [None]
  - TREATMENT RELATED SECONDARY MALIGNANCY [None]
